FAERS Safety Report 11141810 (Version 2)
Quarter: 2015Q2

REPORT INFORMATION
  Report Type: Spontaneous
  Country: US (occurrence: US)
  Receive Date: 20150527
  Receipt Date: 20150615
  Transmission Date: 20150821
  Serious: Yes (Other)
  Sender: FDA-Public Use
  Company Number: US-PFIZER INC-2015157968

PATIENT
  Age: 47 Year
  Sex: Female
  Weight: 147 kg

DRUGS (5)
  1. LYRICA [Suspect]
     Active Substance: PREGABALIN
     Indication: NEUROPATHY PERIPHERAL
     Dosage: 100 MG, 1X/DAY
  2. LYRICA [Suspect]
     Active Substance: PREGABALIN
     Indication: FIBROMYALGIA
  3. NOVOLOG [Concomitant]
     Active Substance: INSULIN ASPART
     Dosage: AT SLIDING SCALE
  4. LANTUS [Concomitant]
     Active Substance: INSULIN GLARGINE
     Dosage: 50 IU, 1X/DAY
  5. INSULIN [Concomitant]
     Active Substance: INSULIN NOS
     Dosage: UNK

REACTIONS (2)
  - Mental impairment [Unknown]
  - Activities of daily living impaired [Unknown]
